FAERS Safety Report 18199294 (Version 1)
Quarter: 2020Q3

REPORT INFORMATION
  Report Type: Spontaneous
  Country: CN (occurrence: CN)
  Receive Date: 20200826
  Receipt Date: 20200826
  Transmission Date: 20201103
  Serious: Yes (Other)
  Sender: FDA-Public Use
  Company Number: CN-ALLERGAN-2031771US

PATIENT
  Sex: Male
  Weight: 80 kg

DRUGS (1)
  1. CEFTAZIDIME;AVIBACTAM ? BP [Suspect]
     Active Substance: AVIBACTAM SODIUM\CEFTAZIDIME
     Indication: PANCREATITIS ACUTE
     Dosage: 2.5 G, TID
     Route: 041
     Dates: start: 20200703, end: 20200703

REACTIONS (3)
  - Delirium [Unknown]
  - Dysphoria [Unknown]
  - Epilepsy [Unknown]

NARRATIVE: CASE EVENT DATE: 20200703
